FAERS Safety Report 13070409 (Version 9)
Quarter: 2024Q4

REPORT INFORMATION
  Report Type: Report from Study
  Country: JP (occurrence: JP)
  Receive Date: 20161228
  Receipt Date: 20241002
  Transmission Date: 20250115
  Serious: Yes (Hospitalization, Other)
  Sender: ALEXION PHARMACEUTICALS
  Company Number: JP-ALXN-A201608341AA

PATIENT
  Age: 2 Year

DRUGS (9)
  1. STRENSIQ [Suspect]
     Active Substance: ASFOTASE ALFA
     Indication: Hypophosphatasia
     Dosage: 2 MILLIGRAM/KILOGRAM, TIW
  2. STRENSIQ [Suspect]
     Active Substance: ASFOTASE ALFA
     Dosage: 1 MG/KG, 6 TIMES A WEEK
  3. STRENSIQ [Suspect]
     Active Substance: ASFOTASE ALFA
     Dosage: 2 MILLIGRAM/KILOGRAM, TIW
  4. STRENSIQ [Suspect]
     Active Substance: ASFOTASE ALFA
     Dosage: 1 MILLIGRAM/KILOGRAM, TIW
  5. STRENSIQ [Suspect]
     Active Substance: ASFOTASE ALFA
     Dosage: 3 MILLIGRAM/KILOGRAM, TIW
  6. STRENSIQ [Suspect]
     Active Substance: ASFOTASE ALFA
     Dosage: 2 MILLIGRAM/KILOGRAM, TIW
  7. STRENSIQ [Suspect]
     Active Substance: ASFOTASE ALFA
     Dosage: 3 MILLIGRAM/KILOGRAM, TIW
     Route: 065
  8. L-KEFLEX [Concomitant]
     Indication: Prophylaxis
     Dosage: 200 MILLIGRAM, QD
  9. DIAZEPAM [Concomitant]
     Active Substance: DIAZEPAM
     Indication: Prophylaxis
     Dosage: 2 MILLIGRAM, BID

REACTIONS (11)
  - Febrile convulsion [Recovered/Resolved]
  - Respiratory syncytial virus infection [Recovered/Resolved]
  - Intellectual disability [Unknown]
  - Neurogenic bladder [Recovered/Resolved]
  - Nephrocalcinosis [Unknown]
  - Drug ineffective [Unknown]
  - Pharyngitis [Recovered/Resolved]
  - Bronchitis [Recovered/Resolved]
  - Gastroenteritis [Recovered/Resolved]
  - Streptococcal infection [Recovered/Resolved]
  - Tooth loss [Not Recovered/Not Resolved]
